FAERS Safety Report 15694864 (Version 1)
Quarter: 2018Q4

REPORT INFORMATION
  Report Type: Spontaneous
  Country: US (occurrence: US)
  Receive Date: 20181206
  Receipt Date: 20181206
  Transmission Date: 20190205
  Serious: Yes (Other)
  Sender: FDA-Public Use
  Company Number: US-BAYER-2018-223742

PATIENT
  Age: 10 Year
  Sex: Female
  Weight: 74 kg

DRUGS (1)
  1. MIRALAX [Suspect]
     Active Substance: POLYETHYLENE GLYCOL 3350
     Indication: GASTROINTESTINAL DISORDER
     Dosage: UNK
     Route: 048
     Dates: start: 2015

REACTIONS (6)
  - Tremor [Unknown]
  - Drug ineffective [Unknown]
  - Gait disturbance [Unknown]
  - Haemorrhage [Unknown]
  - Somnolence [Unknown]
  - Intervertebral disc disorder [None]
